FAERS Safety Report 5478782-X (Version None)
Quarter: 2007Q4

REPORT INFORMATION
  Report Type: 
  Country: None (occurrence: None)
  Receive Date: 20071005
  Receipt Date: 20070928
  Transmission Date: 20080405
  Serious: Yes (Hospitalization)
  Sender: FDA-Public Use
  Company Number: DE-GENENTECH-245042

PATIENT
  Sex: Male
  Weight: 79 kg

DRUGS (4)
  1. RITUXAN [Suspect]
     Indication: RHEUMATOID ARTHRITIS
     Dosage: 1 G, DAYS 1+15
     Route: 042
     Dates: start: 20070529, end: 20070613
  2. PREDNISOLONE [Suspect]
     Indication: RHEUMATOID ARTHRITIS
     Dosage: 25 UNK, QD
     Route: 048
     Dates: start: 20070704
  3. SEVREDOL [Concomitant]
     Indication: RHEUMATOID ARTHRITIS
     Dosage: 10 UNK, UNK
     Route: 048
     Dates: start: 20070704
  4. FENTANYL TRANSDERMAL SYSTEM [Concomitant]
     Indication: RHEUMATOID ARTHRITIS
     Dosage: 100 A?G, Q3D
     Dates: start: 20070704

REACTIONS (3)
  - DIVERTICULITIS [None]
  - LARGE INTESTINE PERFORATION [None]
  - PERITONITIS [None]
